FAERS Safety Report 10102131 (Version 1)
Quarter: 2014Q2

REPORT INFORMATION
  Report Type: Spontaneous
  Country: US (occurrence: None)
  Receive Date: 20140423
  Receipt Date: 20140423
  Transmission Date: 20141212
  Serious: Yes (Hospitalization)
  Sender: FDA-Public Use
  Company Number: None

PATIENT
  Age: 58 Year
  Sex: Female
  Weight: 110.9 kg

DRUGS (2)
  1. CARBOPLATIN [Suspect]
  2. PLACITAXEL (MANUFACTURER UNKNOWN) (PACLITAXEL) (PACLITAXEL) [Suspect]

REACTIONS (4)
  - Fatigue [None]
  - Constipation [None]
  - Nausea [None]
  - Intra-abdominal haemorrhage [None]
